FAERS Safety Report 8168227-3 (Version None)
Quarter: 2012Q1

REPORT INFORMATION
  Report Type: 
  Country: None (occurrence: None)
  Receive Date: 20120227
  Receipt Date: 20120221
  Transmission Date: 20120608
  Serious: Yes (Other)
  Sender: FDA-Public Use
  Company Number: US-PFIZER INC-2012002703

PATIENT
  Sex: Female
  Weight: 68.5 kg

DRUGS (3)
  1. PROPRANOLOL [Concomitant]
     Indication: HYPERTENSION
     Dosage: 10 MG, DAILY
  2. FUROSEMIDE [Concomitant]
     Indication: FLUID IMBALANCE
     Dosage: 80 MG, 2X/DAY
  3. PROTONIX [Suspect]
     Indication: ACID BASE BALANCE ABNORMAL
     Dosage: 40 MG, 2X/DAY

REACTIONS (1)
  - GASTRIC HAEMORRHAGE [None]
